FAERS Safety Report 5582809-4 (Version None)
Quarter: 2008Q1

REPORT INFORMATION
  Report Type: 
  Country: None (occurrence: None)
  Receive Date: 20080107
  Receipt Date: 20071228
  Transmission Date: 20080703
  Serious: Yes (Hospitalization)
  Sender: FDA-Public Use
  Company Number: US-JNJFOC-20071003107

PATIENT
  Sex: Female
  Weight: 78.47 kg

DRUGS (14)
  1. REMICADE [Suspect]
     Route: 042
  2. REMICADE [Suspect]
     Route: 042
  3. REMICADE [Suspect]
     Indication: RHEUMATOID ARTHRITIS
     Route: 042
  4. METHOTREXATE [Suspect]
     Indication: RHEUMATOID ARTHRITIS
  5. MOBIC [Concomitant]
     Route: 048
  6. ZOLOFT [Concomitant]
     Route: 048
  7. PRAVACHOL [Concomitant]
     Route: 048
  8. NASACORT AQ [Concomitant]
     Route: 045
  9. LORAZEPAM [Concomitant]
     Route: 048
  10. NEXIUM [Concomitant]
     Route: 048
  11. PROTONIX [Concomitant]
     Route: 048
  12. LISINOPRIL [Concomitant]
  13. DARVOCET [Concomitant]
     Indication: PAIN
  14. EVISTA [Concomitant]
     Route: 048

REACTIONS (3)
  - CLOSTRIDIUM DIFFICILE COLITIS [None]
  - INTERSTITIAL LUNG DISEASE [None]
  - PNEUMONIA [None]
